FAERS Safety Report 5795462-1 (Version None)
Quarter: 2008Q2

REPORT INFORMATION
  Report Type: 
  Country: None (occurrence: None)
  Receive Date: 20080601
  Receipt Date: 20080213
  Transmission Date: 20081010
  Serious: No
  Sender: FDA-Public Use
  Company Number: US200801004565

PATIENT
  Age: 37 Year
  Sex: Female

DRUGS (6)
  1. BYETTA [Suspect]
     Indication: DECREASED APPETITE
     Dosage: 5 UG, 2/D, SUBCUTANEOUS
     Route: 058
     Dates: start: 20080119
  2. EXENATIDE PEN, DISPOSABLE DEVICE [Concomitant]
  3. MERIDIA [Concomitant]
  4. ADVAIR DISKUS 100/50 [Concomitant]
  5. SINGULAIR [Concomitant]
  6. ALBUTEROL (SALBUTAMOL) INHALER [Concomitant]

REACTIONS (1)
  - PARAESTHESIA [None]
